FAERS Safety Report 14342929 (Version 1)
Quarter: 2017Q4

REPORT INFORMATION
  Report Type: Spontaneous
  Country: US (occurrence: US)
  Receive Date: 20171230
  Receipt Date: 20171230
  Transmission Date: 20180321
  Serious: Yes (Disabling)
  Sender: FDA-Public Use
  Company Number: None

PATIENT
  Sex: Female
  Weight: 21.6 kg

DRUGS (4)
  1. OSELTAMIVIR 6MG/ML SUS ALV [Suspect]
     Active Substance: OSELTAMIVIR
     Indication: INFLUENZA
     Dosage: ?          QUANTITY:120 MLS;?
     Route: 048
     Dates: start: 20171226, end: 20171228
  2. CAMOMILIA [Concomitant]
  3. ASMANEX [Concomitant]
     Active Substance: MOMETASONE FUROATE
  4. ALBUETEROL [Concomitant]

REACTIONS (8)
  - Vulvovaginal mycotic infection [None]
  - Grunting [None]
  - Anger [None]
  - Restlessness [None]
  - Nightmare [None]
  - Crying [None]
  - Screaming [None]
  - Feeling abnormal [None]

NARRATIVE: CASE EVENT DATE: 20171228
